FAERS Safety Report 19912732 (Version 2)
Quarter: 2021Q4

REPORT INFORMATION
  Report Type: Spontaneous
  Country: US (occurrence: US)
  Receive Date: 20211004
  Receipt Date: 20211209
  Transmission Date: 20220303
  Serious: Yes (Other)
  Sender: FDA-Public Use
  Company Number: US-SA-SAC20210930000292

PATIENT
  Sex: Male

DRUGS (3)
  1. DUPIXENT [Suspect]
     Active Substance: DUPILUMAB
     Indication: Dermatitis atopic
     Dosage: 300 MG, QOW
     Route: 058
     Dates: start: 20210604
  2. ALBUTEROL SULFATE [Concomitant]
     Active Substance: ALBUTEROL SULFATE
  3. HYDROCORTISONE [Concomitant]
     Active Substance: HYDROCORTISONE

REACTIONS (9)
  - Cellulitis [Not Recovered/Not Resolved]
  - Skin disorder [Unknown]
  - Pain of skin [Unknown]
  - Skin exfoliation [Unknown]
  - Rash [Unknown]
  - Rash follicular [Unknown]
  - Rash papular [Unknown]
  - Product dose omission issue [Unknown]
  - Dermatitis atopic [Unknown]
